FAERS Safety Report 16524418 (Version 1)
Quarter: 2019Q3

REPORT INFORMATION
  Report Type: Spontaneous
  Country: IT (occurrence: IT)
  Receive Date: 20190703
  Receipt Date: 20190703
  Transmission Date: 20191004
  Serious: Yes (Other)
  Sender: FDA-Public Use
  Company Number: IT-TEVA-2019-IT-1072123

PATIENT
  Sex: Female

DRUGS (1)
  1. AMOXICILLINA/CLAVULANIC ACID TEVA 2.2 G POLVERE FOR SOLUTION FOR IN [Suspect]
     Active Substance: AMOXICILLIN\CLAVULANIC ACID
     Route: 042

REACTIONS (1)
  - Anaphylactic shock [Recovered/Resolved]

NARRATIVE: CASE EVENT DATE: 20190610
